FAERS Safety Report 9502608 (Version 2)
Quarter: 2013Q3

REPORT INFORMATION
  Report Type: Spontaneous
  Country: JP (occurrence: JP)
  Receive Date: 20130906
  Receipt Date: 20130925
  Transmission Date: 20140515
  Serious: Yes (Other)
  Sender: FDA-Public Use
  Company Number: JP-JNJFOC-20130901038

PATIENT
  Age: 76 Year
  Sex: Female
  Weight: 42 kg

DRUGS (7)
  1. XARELTO [Suspect]
     Indication: CEREBROVASCULAR ACCIDENT PROPHYLAXIS
     Route: 048
     Dates: start: 20130216
  2. XARELTO [Suspect]
     Indication: ATRIAL FIBRILLATION
     Route: 048
     Dates: start: 20130216
  3. EVISTA [Concomitant]
     Indication: OSTEOPOROSIS
     Route: 048
     Dates: start: 20120106
  4. CALCITRIOL [Concomitant]
     Indication: OSTEOPOROSIS
     Route: 048
     Dates: start: 20120106
  5. REBAMIPIDE [Concomitant]
     Indication: GASTRITIS
     Route: 048
     Dates: start: 20120514
  6. ACECOL [Concomitant]
     Indication: HYPERTENSION
     Route: 048
     Dates: start: 20120106
  7. LENDORMIN [Concomitant]
     Indication: INSOMNIA
     Route: 048
     Dates: start: 20130622

REACTIONS (2)
  - Embolic stroke [Recovered/Resolved]
  - Drug ineffective [Unknown]
